FAERS Safety Report 9067617 (Version 1)
Quarter: 2013Q1

REPORT INFORMATION
  Report Type: Spontaneous
  Country: US (occurrence: US)
  Receive Date: 20130128
  Receipt Date: 20130128
  Transmission Date: 20140127
  Serious: Yes (Other)
  Sender: FDA-Public Use
  Company Number: US-PFIZER INC-2013034872

PATIENT
  Age: 45 Year
  Sex: Female
  Weight: 70.75 kg

DRUGS (5)
  1. NARDIL [Suspect]
     Indication: DEPRESSION
     Dosage: 15 MG, 3X/DAY
     Route: 048
  2. NARDIL [Suspect]
     Indication: PHOBIA
     Dosage: 15 MG, 3X/DAY
     Route: 048
     Dates: start: 2002
  3. LEVOTHYROXINE [Concomitant]
     Indication: THYROID DISORDER
     Dosage: UNK
  4. TAGAMET [Concomitant]
     Indication: GASTRIC DISORDER
     Dosage: UNK
  5. TRAMADOL [Concomitant]
     Indication: PAIN
     Dosage: UNK

REACTIONS (10)
  - Optic neuritis [Unknown]
  - Fall [Unknown]
  - Visual impairment [Unknown]
  - Diplopia [Unknown]
  - Hypoaesthesia [Unknown]
  - Emotional disorder [Unknown]
  - Memory impairment [Unknown]
  - Abnormal dreams [Unknown]
  - Personality disorder [Unknown]
  - Paraesthesia [Unknown]
